FAERS Safety Report 8453588 (Version 12)
Quarter: 2013Q4

REPORT INFORMATION
  Report Type: Report from Study
  Country: IL (occurrence: IL)
  Receive Date: 20120312
  Receipt Date: 20131226
  Transmission Date: 20140711
  Serious: Yes (Life-Threatening, Other)
  Sender: FDA-Public Use
  Company Number: IL-ROCHE-1037397

PATIENT
  Age: 63 Year
  Sex: Male

DRUGS (10)
  1. VEMURAFENIB [Suspect]
     Indication: MALIGNANT MELANOMA
     Dosage: LAST DOSE PRIOR TO SAE: 18/JAN/2012
     Route: 048
     Dates: start: 20110721, end: 20120118
  2. METFORMIN [Concomitant]
  3. LEVOTHYROXINE [Concomitant]
     Dosage: ALSO GIVEN AS ELTROXIN 50 MCG DAILY
     Route: 065
  4. TAMSULOSINE [Concomitant]
     Route: 065
  5. CRESTOR [Concomitant]
     Route: 065
  6. LANSOPRAZOLE [Concomitant]
     Route: 065
  7. SIMVASTATIN [Concomitant]
     Route: 065
  8. ELTROXIN [Concomitant]
     Route: 065
  9. OXYCODONE [Concomitant]
     Route: 065
  10. LACTULOSE [Concomitant]
     Route: 065

REACTIONS (3)
  - Renal failure acute [Recovered/Resolved]
  - Left ventricular dysfunction [Recovered/Resolved]
  - Hypokinesia [Recovered/Resolved]
